FAERS Safety Report 16204836 (Version 1)
Quarter: 2020Q3

REPORT INFORMATION
  Report Type: Spontaneous
  Country: DE (occurrence: DE)
  Receive Date: 20190416
  Receipt Date: 20190416
  Transmission Date: 20201105
  Serious: Yes (Hospitalization)
  Sender: FDA-Public Use
  Company Number: DE-PFIZER INC-2019161576

PATIENT
  Age: 61 Year
  Sex: Female
  Weight: 69 kg

DRUGS (6)
  1. TRASTUZUMAB. [Suspect]
     Active Substance: TRASTUZUMAB
     Dosage: 414 MG, EVERY 3 WEEKS
     Route: 042
  2. PERTUZUMAB. [Suspect]
     Active Substance: PERTUZUMAB
     Dosage: DOSE BLINDED
     Route: 042
     Dates: end: 20101223
  3. DOCETAXEL. [Suspect]
     Active Substance: DOCETAXEL
     Dosage: 129.75 MG, EVERY 3 WEEKS
     Route: 042
     Dates: start: 20100408
  4. PERTUZUMAB. [Suspect]
     Active Substance: PERTUZUMAB
     Dosage: DOSE BLINDED
     Route: 042
     Dates: end: 20101223
  5. IBANDRONIC ACID. [Suspect]
     Active Substance: IBANDRONIC ACID
     Dosage: 6 MG, EVERY 3 WEEKS
     Dates: start: 20100309, end: 20101109
  6. TRASTUZUMAB. [Suspect]
     Active Substance: TRASTUZUMAB
     Dosage: 8 MG/KG, CYCLIC (LOADING DOSE FOR CYCLE 1)
     Route: 042

REACTIONS (1)
  - Osteonecrosis of jaw [Recovered/Resolved]

NARRATIVE: CASE EVENT DATE: 20101209
